FAERS Safety Report 7141387-9 (Version None)
Quarter: 2010Q4

REPORT INFORMATION
  Report Type: 
  Country: None (occurrence: None)
  Receive Date: 20101202
  Receipt Date: 20101202
  Transmission Date: 20110411
  Serious: Yes (Death)
  Sender: FDA-Public Use
  Company Number: None

PATIENT
  Sex: Female
  Weight: 77.1115 kg

DRUGS (1)
  1. HEPRIN [Suspect]
     Dates: start: 20100607

REACTIONS (1)
  - CARDIO-RESPIRATORY ARREST [None]
